FAERS Safety Report 23146000 (Version 1)
Quarter: 2023Q4

REPORT INFORMATION
  Report Type: Spontaneous
  Country: SA (occurrence: SA)
  Receive Date: 20231104
  Receipt Date: 20231104
  Transmission Date: 20240110
  Serious: Yes (Other)
  Sender: FDA-Public Use
  Company Number: SA-EPICPHARMA-SA-2023EPCLIT01639

PATIENT
  Age: 12 Year
  Sex: Male

DRUGS (2)
  1. CARBOPLATIN [Suspect]
     Active Substance: CARBOPLATIN
     Indication: Nongerminomatous germ cell tumour of the CNS
     Route: 065
  2. ETOPOSIDE [Suspect]
     Active Substance: ETOPOSIDE
     Indication: Nongerminomatous germ cell tumour of the CNS
     Route: 065

REACTIONS (2)
  - Acute kidney injury [Unknown]
  - Product use in unapproved indication [Unknown]
